FAERS Safety Report 11106457 (Version 1)
Quarter: 2015Q2

REPORT INFORMATION
  Report Type: Spontaneous
  Country: CH (occurrence: CH)
  Receive Date: 20150512
  Receipt Date: 20150512
  Transmission Date: 20150821
  Serious: Yes (Death)
  Sender: FDA-Public Use
  Company Number: CH-PFIZER INC-2015156367

PATIENT
  Age: 68 Year
  Sex: Female

DRUGS (11)
  1. ASPIRIN CARDIO [Interacting]
     Active Substance: ASPIRIN
     Indication: CORONARY ARTERY DISEASE
     Dosage: 100 MG, 1X/DAY
     Route: 048
     Dates: start: 20150218
  2. ATORVASTATIN [Concomitant]
     Active Substance: ATORVASTATIN
     Dosage: UNK
  3. FRAGMIN [Interacting]
     Active Substance: DALTEPARIN SODIUM
     Dosage: 12500 IU, 1X/DAY
     Route: 058
     Dates: start: 20150224
  4. PANTOZOL [Concomitant]
     Active Substance: PANTOPRAZOLE SODIUM
     Dosage: UNK
  5. MARCOUMAR [Suspect]
     Active Substance: PHENPROCOUMON
     Indication: ATRIAL FIBRILLATION
     Dosage: 4.5 MG, 1X/DAY IN THE EVENING
     Route: 048
     Dates: start: 20150224, end: 20150224
  6. CONCOR [Suspect]
     Active Substance: BISOPROLOL FUMARATE
     Indication: ATRIAL FIBRILLATION
     Dosage: 2.5 MG, 2X/DAY
     Route: 048
  7. DAFALGAN [Concomitant]
     Active Substance: ACETAMINOPHEN
     Dosage: UNK
  8. TOREM [Concomitant]
     Active Substance: TORSEMIDE
     Dosage: UNK
  9. RAMIPRIL. [Concomitant]
     Active Substance: RAMIPRIL
     Dosage: UNK
  10. MARCOUMAR [Suspect]
     Active Substance: PHENPROCOUMON
     Dosage: 3 MG, 1X/DAY IN THE EVENING
     Route: 048
     Dates: start: 20150225
  11. FRAGMIN [Interacting]
     Active Substance: DALTEPARIN SODIUM
     Indication: ATRIAL FIBRILLATION
     Dosage: 5000 IU, 1X/DAY
     Route: 058
     Dates: start: 20150218, end: 20150223

REACTIONS (6)
  - Cerebral haemorrhage [Fatal]
  - Atrial fibrillation [Fatal]
  - Haemorrhagic diathesis [Fatal]
  - Blood pressure decreased [Fatal]
  - Drug interaction [Fatal]
  - Acute myocardial infarction [Fatal]

NARRATIVE: CASE EVENT DATE: 20150226
